FAERS Safety Report 7624052-0 (Version None)
Quarter: 2011Q3

REPORT INFORMATION
  Report Type: 
  Country: None (occurrence: None)
  Receive Date: 20110720
  Receipt Date: 20110707
  Transmission Date: 20111222
  Serious: Yes (Other)
  Sender: FDA-Public Use
  Company Number: PHHY2010AU30498

PATIENT
  Sex: Female
  Weight: 77 kg

DRUGS (13)
  1. DURAGESIC-100 [Concomitant]
     Dosage: 25 MCG /HR (4.2 MG), EVERY 03 HR
     Route: 062
  2. CALCIUM CARBONATE [Concomitant]
  3. QUININE SULFATE [Concomitant]
     Dosage: 300 MG,  1-2 NOCTE PRN
     Route: 048
  4. OXYCODONE HCL [Concomitant]
     Dosage: 5 MG, QID
     Route: 048
  5. CAPSAICIN [Concomitant]
     Route: 061
  6. OSTELIN [Concomitant]
     Dosage: 500 IU, 02 NOCTE
     Route: 048
  7. RABEPRAZOLE SODIUM [Concomitant]
     Dosage: 20 MG, QD
     Route: 048
  8. FERROGRAD C [Concomitant]
     Route: 048
  9. NEURONTIN [Concomitant]
     Dosage: 300 MG, TID
  10. ZOLEDRONOC ACID [Suspect]
     Indication: OSTEOPOROTIC FRACTURE
     Dosage: 5 MG, UNK
     Route: 042
     Dates: start: 20100511
  11. VITAMIN D [Concomitant]
     Dosage: 600 MG, 02 NOCTE
     Route: 048
  12. ACETAMINOPHEN [Concomitant]
     Dosage: 665 MG, TID
  13. TEMAZEPAM [Concomitant]
     Dosage: 10 MG, 1-2 NOCTE
     Route: 048

REACTIONS (16)
  - MEAN CELL VOLUME INCREASED [None]
  - ARTHRALGIA [None]
  - JOINT SWELLING [None]
  - BLOOD CALCIUM DECREASED [None]
  - SKIN ATROPHY [None]
  - HAEMATOCRIT DECREASED [None]
  - GOUT [None]
  - CONTUSION [None]
  - OEDEMA PERIPHERAL [None]
  - MEDIAN NERVE INJURY [None]
  - NAUSEA [None]
  - BLOOD CREATININE INCREASED [None]
  - GLOMERULAR FILTRATION RATE DECREASED [None]
  - PAIN IN EXTREMITY [None]
  - PYREXIA [None]
  - RED BLOOD CELL COUNT DECREASED [None]
